FAERS Safety Report 16368667 (Version 1)
Quarter: 2019Q2

REPORT INFORMATION
  Report Type: Spontaneous
  Country: US (occurrence: US)
  Receive Date: 20190423
  Receipt Date: 20190423
  Transmission Date: 20190711
  Serious: Yes (Hospitalization, Disabling)
  Sender: FDA-Public Use
  Company Number: None

PATIENT
  Age: 63 Year
  Sex: Female
  Weight: 55.34 kg

DRUGS (1)
  1. IVAREST [Suspect]
     Active Substance: BENZYL ALCOHOL\DIPHENHYDRAMINE HYDROCHLORIDE\ZINC OXIDE
     Indication: INFECTION PROPHYLAXIS
     Dosage: FRONT + BACK OF BOTH CALVES.
     Route: 061
     Dates: start: 20180802

REACTIONS (6)
  - Muscular weakness [None]
  - Coordination abnormal [None]
  - Gait disturbance [None]
  - Spinal cord injury thoracic [None]
  - Balance disorder [None]
  - Hypoaesthesia [None]

NARRATIVE: CASE EVENT DATE: 20180802
